FAERS Safety Report 12833865 (Version 2)
Quarter: 2016Q4

REPORT INFORMATION
  Report Type: Report from Study
  Country: NL (occurrence: NL)
  Receive Date: 20161010
  Receipt Date: 20161020
  Transmission Date: 20170207
  Serious: Yes (Hospitalization)
  Sender: FDA-Public Use
  Company Number: NL-B.I. PHARMACEUTICALS,INC./RIDGEFIELD-2016-BI-064994

PATIENT
  Age: 88 Year
  Sex: Female

DRUGS (10)
  1. AMLODIPINE/VALSARTAN [Concomitant]
     Active Substance: AMLODIPINE\VALSARTAN
     Indication: HYPERTENSION
     Route: 048
  2. ASPART/INSULIN [Concomitant]
     Indication: TYPE 2 DIABETES MELLITUS
     Dosage: DAILY DOSE: 41E DAILY
     Route: 058
     Dates: start: 20151219
  3. PRAVASTATIN. [Concomitant]
     Active Substance: PRAVASTATIN
     Indication: HYPERCHOLESTEROLAEMIA
     Route: 048
  4. BLINDED LINAGLIPTIN [Suspect]
     Active Substance: LINAGLIPTIN
     Indication: TYPE 2 DIABETES MELLITUS
     Route: 048
     Dates: start: 20151001
  5. DIVISUN [Concomitant]
     Indication: VITAMIN D DEFICIENCY
  6. ACETYLSALICYL ACID [Concomitant]
     Indication: PROPHYLAXIS
     Route: 048
  7. BARNIDIPINE [Concomitant]
     Active Substance: BARNIDIPINE
     Indication: HYPERTENSION
     Route: 065
  8. PANTOZOL [Concomitant]
     Active Substance: PANTOPRAZOLE SODIUM
     Indication: PROPHYLAXIS
     Route: 048
  9. THYRAX [Concomitant]
     Active Substance: LEVOTHYROXINE
     Indication: HYPOTHYROIDISM
     Route: 065
  10. METOPROLOL. [Concomitant]
     Active Substance: METOPROLOL
     Indication: HYPERTENSION
     Route: 048

REACTIONS (1)
  - Syncope [Recovered/Resolved]

NARRATIVE: CASE EVENT DATE: 20160910
